FAERS Safety Report 11877377 (Version 4)
Quarter: 2016Q2

REPORT INFORMATION
  Report Type: Spontaneous
  Country: IE (occurrence: IE)
  Receive Date: 20151229
  Receipt Date: 20160415
  Transmission Date: 20160815
  Serious: Yes (Other)
  Sender: FDA-Public Use
  Company Number: IE-TAKEDA-2015TUS017411

PATIENT
  Age: 20 Year
  Sex: Male
  Weight: 56.2 kg

DRUGS (8)
  1. ENTYVIO [Suspect]
     Active Substance: VEDOLIZUMAB
     Indication: CROHN^S DISEASE
     Dosage: 300 MG, Q8WEEKS
     Route: 042
     Dates: start: 20150326
  2. SALAZOPYRIN [Concomitant]
     Active Substance: SULFASALAZINE
     Indication: CROHN^S DISEASE
     Dosage: 2 G, BID
     Route: 048
     Dates: start: 201407
  3. METOJECT [Concomitant]
     Active Substance: METHOTREXATE SODIUM
     Indication: CROHN^S DISEASE
     Dosage: 15 MG, 1/WEEK
     Route: 058
     Dates: start: 201512
  4. COLOFAC                            /00139402/ [Concomitant]
     Indication: CROHN^S DISEASE
     Dosage: UNK UNK, BID
     Route: 048
     Dates: start: 201505
  5. BUDESONIDE. [Concomitant]
     Active Substance: BUDESONIDE
     Indication: CROHN^S DISEASE
     Dosage: UNK
     Route: 048
     Dates: start: 201503, end: 201512
  6. FOLIC ACID. [Concomitant]
     Active Substance: FOLIC ACID
     Dosage: 5 MG, 1/WEEK
     Route: 048
     Dates: start: 201512
  7. TELMISARTAN. [Concomitant]
     Active Substance: TELMISARTAN
     Dosage: 80 MG, UNK
  8. TELMISARTAN. [Concomitant]
     Active Substance: TELMISARTAN
     Indication: HYPERTENSION
     Dosage: 40 MG, QD
     Route: 048
     Dates: start: 20160218

REACTIONS (1)
  - Hypertension [Recovered/Resolved]

NARRATIVE: CASE EVENT DATE: 20150528
